FAERS Safety Report 20854471 (Version 1)
Quarter: 2022Q2

REPORT INFORMATION
  Report Type: Spontaneous
  Country: US (occurrence: US)
  Receive Date: 20220520
  Receipt Date: 20220520
  Transmission Date: 20220721
  Serious: No
  Sender: FDA-Public Use
  Company Number: US-BRISTOL-MYERS SQUIBB COMPANY-2022-027625

PATIENT
  Age: 72 Year
  Sex: Female
  Weight: 50.348 kg

DRUGS (2)
  1. OPDIVO [Suspect]
     Active Substance: NIVOLUMAB
     Indication: Metastatic malignant melanoma
     Dosage: 4 DOSES OF OPDIVO AND YERVOY - BEGAN SEPT 2021?4 DOSES OF OPDIVO ONLY BEGAN 23DEC2021 - DOSE OF 240M
     Route: 042
     Dates: start: 202109
  2. YERVOY [Suspect]
     Active Substance: IPILIMUMAB
     Indication: Metastatic malignant melanoma
     Dosage: 4 DOSES OF OPDIVO AND YERVOY  - BEGAN SEPT 2021.
     Route: 042
     Dates: start: 202109

REACTIONS (3)
  - Erythema nodosum [Unknown]
  - Pruritus [Unknown]
  - Rash [Unknown]

NARRATIVE: CASE EVENT DATE: 20220201
